FAERS Safety Report 18392896 (Version 1)
Quarter: 2020Q4

REPORT INFORMATION
  Report Type: Spontaneous
  Country: US (occurrence: US)
  Receive Date: 20201016
  Receipt Date: 20201016
  Transmission Date: 20210114
  Serious: Yes (Hospitalization)
  Sender: FDA-Public Use
  Company Number: None

PATIENT
  Age: 86 Year
  Sex: Male
  Weight: 88.45 kg

DRUGS (19)
  1. COLLAGENASE SANTYL [Concomitant]
     Active Substance: COLLAGENASE CLOSTRIDIUM HISTOLYTICUM
  2. BICALUTAMIDE. [Suspect]
     Active Substance: BICALUTAMIDE
     Indication: METASTASES TO BONE
     Route: 048
     Dates: start: 20200922
  3. B COMPLEX 50 [Concomitant]
  4. LEVOTHYROXINE SODIUM. [Concomitant]
     Active Substance: LEVOTHYROXINE SODIUM
  5. RENVELA [Concomitant]
     Active Substance: SEVELAMER CARBONATE
  6. CITALOPRAM HYDROBROMIDE. [Concomitant]
     Active Substance: CITALOPRAM HYDROBROMIDE
  7. ISOSORBIDE MONONITRATE ER [Concomitant]
     Active Substance: ISOSORBIDE MONONITRATE
  8. SODIUM BICARBONATE. [Concomitant]
     Active Substance: SODIUM BICARBONATE
  9. LIPITOR [Concomitant]
     Active Substance: ATORVASTATIN CALCIUM
  10. LEVEMIR [Concomitant]
     Active Substance: INSULIN DETEMIR
  11. TUMS [Concomitant]
     Active Substance: CALCIUM CARBONATE
  12. NITROSTAT [Concomitant]
     Active Substance: NITROGLYCERIN
  13. ASCORBIC ACID. [Concomitant]
     Active Substance: ASCORBIC ACID
  14. PANTOPRAZOLE SODIUM. [Concomitant]
     Active Substance: PANTOPRAZOLE SODIUM
  15. VITAMIN D [Concomitant]
     Active Substance: VITAMIN D NOS
  16. ASPIRIN EC [Concomitant]
     Active Substance: ASPIRIN
  17. ONDANSETRON HCL [Concomitant]
     Active Substance: ONDANSETRON HYDROCHLORIDE
  18. FUROSEMIDE. [Concomitant]
     Active Substance: FUROSEMIDE
  19. TRICOR [Concomitant]
     Active Substance: FENOFIBRATE

REACTIONS (3)
  - Spinal stenosis [None]
  - Diverticulitis [None]
  - Lymphoma [None]

NARRATIVE: CASE EVENT DATE: 20201016
